FAERS Safety Report 8914947 (Version 1)
Quarter: 2012Q4

REPORT INFORMATION
  Report Type: 
  Country: BE (occurrence: BE)
  Receive Date: 20121116
  Receipt Date: 20121116
  Transmission Date: 20130627
  Serious: Yes (Other)
  Sender: FDA-Public Use
  Company Number: BE-BRISTOL-MYERS SQUIBB COMPANY-16983967

PATIENT
  Age: 58 Year
  Sex: Female

DRUGS (4)
  1. ORENCIA [Suspect]
     Indication: RHEUMATOID ARTHRITIS
     Route: 042
     Dates: start: 20090903
  2. METHOTREXATE [Suspect]
     Indication: RHEUMATOID ARTHRITIS
     Route: 048
     Dates: start: 200610
  3. FOLIC ACID [Concomitant]
  4. MAGNESIUM [Concomitant]
     Indication: MUSCLE SPASMS

REACTIONS (6)
  - Diverticulitis [Unknown]
  - Large intestine polyp [Unknown]
  - Large intestine polyp [None]
  - Colon adenoma [None]
  - Intestinal polyp [None]
  - Colon dysplasia [None]
